FAERS Safety Report 25982237 (Version 2)
Quarter: 2025Q4

REPORT INFORMATION
  Report Type: Spontaneous
  Country: US (occurrence: US)
  Receive Date: 20251031
  Receipt Date: 20251103
  Transmission Date: 20260117
  Serious: Yes (Other)
  Sender: ABBVIE
  Company Number: US-ABBVIE-6527580

PATIENT
  Sex: Male

DRUGS (1)
  1. DEPAKOTE ER [Suspect]
     Active Substance: DIVALPROEX SODIUM
     Indication: Epilepsy
     Dosage: TIME INTERVAL: 0.33333333 DAYS: UNKNOWN?750MG DAILY
     Route: 048

REACTIONS (3)
  - Seizure [Unknown]
  - Product residue present [Not Recovered/Not Resolved]
  - Malabsorption [Not Recovered/Not Resolved]
